FAERS Safety Report 5076717-5 (Version None)
Quarter: 2006Q3

REPORT INFORMATION
  Report Type: 
  Country: None (occurrence: None)
  Receive Date: 20060725
  Receipt Date: 20060424
  Transmission Date: 20061208
  Serious: Yes (Hospitalization)
  Sender: FDA-Public Use
  Company Number: 200612593BWH

PATIENT
  Age: 59 Year
  Sex: Female
  Weight: 84.8226 kg

DRUGS (6)
  1. NEXAVAR [Suspect]
     Indication: RENAL CELL CARCINOMA STAGE UNSPECIFIED
     Dosage: 400 MG, BID, ORAL
     Route: 048
     Dates: start: 20060310, end: 20060319
  2. LEXAPRO [Concomitant]
  3. LORAZEPAM [Concomitant]
  4. HYDROCODONE BITARTRATE [Concomitant]
  5. BENADRYL [Concomitant]
  6. HYDROCORTISONE [Concomitant]

REACTIONS (6)
  - BLISTER [None]
  - BLISTER INFECTED [None]
  - DYSPEPSIA [None]
  - ERYTHEMA MULTIFORME [None]
  - RASH GENERALISED [None]
  - SKIN BURNING SENSATION [None]
